FAERS Safety Report 25212628 (Version 2)
Quarter: 2025Q3

REPORT INFORMATION
  Report Type: Report from Study
  Country: US (occurrence: US)
  Receive Date: 20250418
  Receipt Date: 20250803
  Transmission Date: 20251021
  Serious: Yes (Other)
  Sender: ALEXION PHARMACEUTICALS
  Company Number: US-AstraZeneca-CH-00848582A

PATIENT
  Sex: Female

DRUGS (1)
  1. OLAPARIB [Suspect]
     Active Substance: OLAPARIB
     Route: 065

REACTIONS (6)
  - Colitis [Unknown]
  - Meniscus injury [Unknown]
  - Fatigue [Unknown]
  - Arthralgia [Unknown]
  - Vascular pseudoaneurysm [Unknown]
  - Discomfort [Unknown]
